FAERS Safety Report 11419541 (Version 1)
Quarter: 2015Q3

REPORT INFORMATION
  Report Type: Spontaneous
  Country: US (occurrence: US)
  Receive Date: 20150826
  Receipt Date: 20150826
  Transmission Date: 20151125
  Serious: No
  Sender: FDA-Public Use
  Company Number: US-SUN PHARMACEUTICAL INDUSTRIES LTD-2015US-95785

PATIENT
  Age: 54 Year
  Sex: Male

DRUGS (1)
  1. SPIRONOLACTONE. [Suspect]
     Active Substance: SPIRONOLACTONE
     Indication: PROPHYLAXIS
     Dosage: 1 DF, DAILY
     Route: 048
     Dates: start: 20150408, end: 20150412

REACTIONS (4)
  - Abdominal discomfort [Unknown]
  - Product physical issue [Unknown]
  - Product odour abnormal [Unknown]
  - Dysphagia [Unknown]

NARRATIVE: CASE EVENT DATE: 20150408
